FAERS Safety Report 7690087-5 (Version None)
Quarter: 2011Q3

REPORT INFORMATION
  Report Type: 
  Country: None (occurrence: None)
  Receive Date: 20110811
  Receipt Date: 20110803
  Transmission Date: 20111222
  Serious: Yes (Other)
  Sender: FDA-Public Use
  Company Number: 2011178375

PATIENT
  Age: 85 Year
  Sex: Female

DRUGS (1)
  1. FRAGMIN [Suspect]
     Indication: HIP ARTHROPLASTY
     Dosage: 0.02ML ON BOX, DAILY AT 7PM, SUBCUTANEOUS
     Route: 058
     Dates: start: 20110701

REACTIONS (1)
  - SKIN EXFOLIATION [None]
